FAERS Safety Report 8304305-3 (Version None)
Quarter: 2012Q2

REPORT INFORMATION
  Report Type: 
  Country: None (occurrence: None)
  Receive Date: 20120423
  Receipt Date: 20120423
  Transmission Date: 20120825
  Serious: Yes (Other)
  Sender: FDA-Public Use
  Company Number: None

PATIENT
  Age: 54 Year
  Sex: Female
  Weight: 72.574 kg

DRUGS (1)
  1. ZAFIRLUKAST [Suspect]
     Indication: ASTHMA
     Dosage: 40MG
     Route: 048
     Dates: start: 20110715, end: 20120320

REACTIONS (7)
  - ASTHMA [None]
  - PRODUCT SUBSTITUTION ISSUE [None]
  - BRONCHITIS CHRONIC [None]
  - WEIGHT INCREASED [None]
  - CONDITION AGGRAVATED [None]
  - DRUG EFFECT DECREASED [None]
  - DYSPHONIA [None]
